FAERS Safety Report 5222097-1 (Version None)
Quarter: 2007Q1

REPORT INFORMATION
  Report Type: 
  Country: None (occurrence: None)
  Receive Date: 20070129
  Receipt Date: 20060615
  Transmission Date: 20070707
  Serious: No
  Sender: FDA-Public Use
  Company Number: 8017073

PATIENT
  Age: 49 Year
  Sex: Female

DRUGS (4)
  1. WELLBUTRIN [Suspect]
     Indication: DRUG USE FOR UNKNOWN INDICATION
     Route: 048
  2. DELSYM [Suspect]
     Indication: COUGH
     Route: 048
     Dates: start: 20060519, end: 20060519
  3. AVELOX [Suspect]
     Route: 048
     Dates: start: 20060518
  4. ALLEGRA [Suspect]
     Indication: DRUG USE FOR UNKNOWN INDICATION
     Route: 048

REACTIONS (3)
  - ANOREXIA [None]
  - DIZZINESS [None]
  - SPEECH DISORDER [None]
